FAERS Safety Report 10144196 (Version 2)
Quarter: 2014Q2

REPORT INFORMATION
  Report Type: Spontaneous
  Country: JP (occurrence: JP)
  Receive Date: 20140430
  Receipt Date: 20140509
  Transmission Date: 20141212
  Serious: Yes (Other)
  Sender: FDA-Public Use
  Company Number: PHHY2014JP050328

PATIENT
  Age: 56 Year
  Sex: Female

DRUGS (3)
  1. 5-FLUOROURACIL [Suspect]
     Indication: COLON CANCER METASTATIC
  2. OXALIPLATIN [Suspect]
     Indication: COLON CANCER METASTATIC
  3. LEUCOVORIN CALCIUM [Suspect]
     Indication: COLON CANCER METASTATIC

REACTIONS (1)
  - Biliary tract infection [Unknown]
